FAERS Safety Report 15317684 (Version 1)
Quarter: 2018Q4

REPORT INFORMATION
  Report Type: Spontaneous
  Country: US (occurrence: US)
  Receive Date: 20180824
  Receipt Date: 20180824
  Transmission Date: 20190204
  Serious: No
  Sender: FDA-Public Use
  Company Number: US-LEADING PHARMA, LLC-2054218

PATIENT
  Sex: Female

DRUGS (1)
  1. LORAZEPAM. [Suspect]
     Active Substance: LORAZEPAM

REACTIONS (9)
  - Muscle twitching [Unknown]
  - Palpitations [Unknown]
  - Hyperhidrosis [Unknown]
  - Autonomic neuropathy [Unknown]
  - Dyspnoea [Unknown]
  - Paraesthesia [Unknown]
  - Insomnia [Unknown]
  - Suicidal ideation [Unknown]
  - Chest discomfort [Unknown]
